FAERS Safety Report 4268900-3 (Version None)
Quarter: 2004Q1

REPORT INFORMATION
  Report Type: 
  Country: None (occurrence: None)
  Receive Date: 20040112
  Receipt Date: 20040112
  Transmission Date: 20041129
  Serious: Yes (Other)
  Sender: FDA-Public Use
  Company Number: None

PATIENT
  Age: 38 Year
  Sex: Female
  Weight: 81.6475 kg

DRUGS (1)
  1. PAROXETINE 10 MG PAR [Suspect]
     Indication: ANXIETY DISORDER
     Dosage: 10 MG ORAL
     Route: 048
     Dates: start: 20000201, end: 20040110

REACTIONS (4)
  - DEPRESSION [None]
  - DRUG WITHDRAWAL SYNDROME [None]
  - SLEEP DISORDER [None]
  - VISION BLURRED [None]
